FAERS Safety Report 7351905-3 (Version None)
Quarter: 2011Q1

REPORT INFORMATION
  Report Type: 
  Country: None (occurrence: None)
  Receive Date: 20110315
  Receipt Date: 20110228
  Transmission Date: 20110831
  Serious: Yes (Hospitalization, Other)
  Sender: FDA-Public Use
  Company Number: US-BAYER-201037529NA

PATIENT
  Sex: Female
  Weight: 113.38 kg

DRUGS (4)
  1. HYDROXYZINE PAMOATE [Concomitant]
     Dosage: 25 MG, UNK
     Route: 048
     Dates: start: 20061017
  2. YASMIN [Suspect]
     Indication: CONTRACEPTION
     Route: 048
     Dates: start: 20060701, end: 20071201
  3. HYDROCODONE BITARTRATE [Concomitant]
     Dosage: 325 MG, UNK
     Route: 048
     Dates: start: 20071018
  4. AMOXICILLIN [Concomitant]
     Dosage: 500 MG, UNK
     Route: 048
     Dates: start: 20071011

REACTIONS (3)
  - GALLBLADDER CHOLESTEROLOSIS [None]
  - CHOLECYSTITIS CHRONIC [None]
  - CHOLELITHIASIS [None]
